FAERS Safety Report 18130186 (Version 1)
Quarter: 2020Q3

REPORT INFORMATION
  Report Type: Spontaneous
  Country: US (occurrence: US)
  Receive Date: 20200810
  Receipt Date: 20200810
  Transmission Date: 20201103
  Serious: Yes (Other)
  Sender: FDA-Public Use
  Company Number: None

PATIENT
  Age: 67 Year
  Sex: Male
  Weight: 66.7 kg

DRUGS (2)
  1. REMDESIVIR. [Suspect]
     Active Substance: REMDESIVIR
     Indication: COVID-19
     Route: 042
     Dates: start: 20200806, end: 20200810
  2. VANCOMYCIN 1000 MG [Concomitant]
     Active Substance: VANCOMYCIN
     Dates: start: 20200807, end: 20200809

REACTIONS (3)
  - Glomerular filtration rate decreased [None]
  - Therapy cessation [None]
  - Blood creatinine increased [None]

NARRATIVE: CASE EVENT DATE: 20200810
